FAERS Safety Report 15989079 (Version 3)
Quarter: 2019Q1

REPORT INFORMATION
  Report Type: Spontaneous
  Country: PL (occurrence: PL)
  Receive Date: 20190221
  Receipt Date: 20190321
  Transmission Date: 20190418
  Serious: Yes (Other)
  Sender: FDA-Public Use
  Company Number: PL-TEVA-2019-PL-1015292

PATIENT
  Age: 65 Year
  Sex: Female

DRUGS (19)
  1. FLUTICASONE. [Suspect]
     Active Substance: FLUTICASONE
     Route: 065
  2. ALPRAZOLAM. [Suspect]
     Active Substance: ALPRAZOLAM
     Indication: ANXIETY
     Route: 065
  3. BUPROPION. [Concomitant]
     Active Substance: BUPROPION
     Dosage: UP TO 300MG/DAY
     Route: 065
  4. MIDAZOLAM [Suspect]
     Active Substance: MIDAZOLAM HYDROCHLORIDE
     Indication: SLEEP DISORDER
     Route: 065
  5. CLOBETASOL [Suspect]
     Active Substance: CLOBETASOL
     Route: 061
  6. LAMOTRIGINE. [Suspect]
     Active Substance: LAMOTRIGINE
     Indication: PRODUCT USED FOR UNKNOWN INDICATION
     Dosage: GRADUALLY INCREASED DOSES UP TO 200 MG/DAY
     Route: 065
  7. NEBIVOLOL. [Suspect]
     Active Substance: NEBIVOLOL
     Route: 065
  8. CLONAZEPAM. [Suspect]
     Active Substance: CLONAZEPAM
     Indication: ANXIETY
     Route: 065
  9. HYDROCHLORTHIAZIDE [Suspect]
     Active Substance: HYDROCHLOROTHIAZIDE
     Route: 065
  10. VENLAFAXINE [Suspect]
     Active Substance: VENLAFAXINE HYDROCHLORIDE
     Dosage: UP TO 300 MG/DAY
     Route: 065
  11. OLANZAPINE. [Suspect]
     Active Substance: OLANZAPINE
     Indication: ANXIETY
     Route: 065
  12. MONTELUKAST [Suspect]
     Active Substance: MONTELUKAST SODIUM
     Route: 065
  13. ZOLPIDEM [Suspect]
     Active Substance: ZOLPIDEM\ZOLPIDEM TARTRATE
     Indication: SLEEP DISORDER
     Route: 065
  14. PAROXETINE. [Suspect]
     Active Substance: PAROXETINE
     Dosage: UP TO 40 MG/DAY
     Route: 065
  15. VALSARTAN. [Suspect]
     Active Substance: VALSARTAN
     Route: 065
  16. QUETIAPINE. [Suspect]
     Active Substance: QUETIAPINE
     Dosage: UP TO 200MG/DAY
     Route: 065
  17. ESOMEPRAZOLE MAGNESIUM DIHYDRATE [Suspect]
     Active Substance: ESOMEPRAZOLE MAGNESIUM
     Route: 065
  18. SALMETEROL [Suspect]
     Active Substance: SALMETEROL
     Route: 065
  19. ESOMEPRAZOLE SODIUM. [Suspect]
     Active Substance: ESOMEPRAZOLE SODIUM
     Route: 065

REACTIONS (2)
  - Drug effect incomplete [Unknown]
  - Drug-induced liver injury [Recovered/Resolved]
